FAERS Safety Report 18575899 (Version 1)
Quarter: 2020Q4

REPORT INFORMATION
  Report Type: Spontaneous
  Country: US (occurrence: US)
  Receive Date: 20201203
  Receipt Date: 20201203
  Transmission Date: 20210114
  Serious: Yes (Death, Other)
  Sender: FDA-Public Use
  Company Number: US-PURDUE-USA-2020-0179465

PATIENT
  Sex: Male

DRUGS (12)
  1. MSIR [Suspect]
     Active Substance: MORPHINE SULFATE
     Indication: NEUROMUSCULAR PAIN
  2. OXYCONTIN [Suspect]
     Active Substance: OXYCODONE HYDROCHLORIDE
     Indication: ACCIDENT AT WORK
     Dosage: UNK
     Route: 048
  3. HYDROCODONE BITARTRATE AND ACETAMINOPHEN [Suspect]
     Active Substance: ACETAMINOPHEN\HYDROCODONE BITARTRATE
     Indication: NEUROMUSCULAR PAIN
  4. OXYCODONE/ ACETAMINOPHEN TABLETS [Suspect]
     Active Substance: ACETAMINOPHEN\OXYCODONE HYDROCHLORIDE
     Indication: NEUROMUSCULAR PAIN
  5. MS CONTIN [Suspect]
     Active Substance: MORPHINE SULFATE
     Indication: NEUROMUSCULAR PAIN
  6. OXYCODONE HCL CR TABLETS (SIMILAR TO NDA 22-272) [Suspect]
     Active Substance: OXYCODONE HYDROCHLORIDE
     Indication: NEUROMUSCULAR PAIN
  7. HYDROCODONE BITARTRATE AND ACETAMINOPHEN [Suspect]
     Active Substance: ACETAMINOPHEN\HYDROCODONE BITARTRATE
     Indication: ACCIDENT AT WORK
     Dosage: UNK
     Route: 048
  8. OXYCODONE HCL CR TABLETS (SIMILAR TO NDA 22-272) [Suspect]
     Active Substance: OXYCODONE HYDROCHLORIDE
     Indication: ACCIDENT AT WORK
     Dosage: UNK
     Route: 048
  9. MSIR [Suspect]
     Active Substance: MORPHINE SULFATE
     Indication: ACCIDENT AT WORK
     Dosage: UNK
     Route: 065
  10. OXYCONTIN [Suspect]
     Active Substance: OXYCODONE HYDROCHLORIDE
     Indication: NEUROMUSCULAR PAIN
  11. MS CONTIN [Suspect]
     Active Substance: MORPHINE SULFATE
     Indication: ACCIDENT AT WORK
     Dosage: UNK
     Route: 048
  12. OXYCODONE/ ACETAMINOPHEN TABLETS [Suspect]
     Active Substance: ACETAMINOPHEN\OXYCODONE HYDROCHLORIDE
     Indication: ACCIDENT AT WORK
     Dosage: UNK
     Route: 048

REACTIONS (7)
  - Death [Fatal]
  - Drug abuse [Unknown]
  - Prescribed overdose [Unknown]
  - Drug dependence [Unknown]
  - Intentional product misuse [Unknown]
  - Hepatic failure [Unknown]
  - Hepatotoxicity [Unknown]

NARRATIVE: CASE EVENT DATE: 20191203
